FAERS Safety Report 7592984-8 (Version None)
Quarter: 2011Q3

REPORT INFORMATION
  Report Type: 
  Country: None (occurrence: None)
  Receive Date: 20110706
  Receipt Date: 20110628
  Transmission Date: 20111222
  Serious: Yes (Other)
  Sender: FDA-Public Use
  Company Number: US-GLAXOSMITHKLINE-A0934865A

PATIENT
  Age: 86 Year
  Sex: Male

DRUGS (3)
  1. CORTICOSTEROIDS [Concomitant]
     Indication: IDIOPATHIC THROMBOCYTOPENIC PURPURA
     Dates: start: 20091101
  2. PROMACTA [Suspect]
     Indication: IDIOPATHIC THROMBOCYTOPENIC PURPURA
     Dosage: 75MG PER DAY
     Dates: start: 20110101, end: 20110523
  3. ROMIPLOSTIM [Concomitant]
     Indication: IDIOPATHIC THROMBOCYTOPENIC PURPURA

REACTIONS (3)
  - DISEASE PROGRESSION [None]
  - DRUG INEFFECTIVE [None]
  - HAEMATOLOGICAL MALIGNANCY [None]
